FAERS Safety Report 25882398 (Version 1)
Quarter: 2025Q4

REPORT INFORMATION
  Report Type: Spontaneous
  Country: EU (occurrence: EU)
  Receive Date: 20251006
  Receipt Date: 20251006
  Transmission Date: 20260118
  Serious: Yes (Other)
  Sender: STRIDES
  Company Number: None

PATIENT
  Age: 77 Year
  Sex: Male

DRUGS (2)
  1. TACROLIMUS [Suspect]
     Active Substance: TACROLIMUS
     Indication: Immunosuppressant drug therapy
     Dosage: 12 MILLIGRAM, QD
     Route: 065
  2. PREDNISOLONE [Suspect]
     Active Substance: PREDNISOLONE
     Indication: Immunosuppressant drug therapy
     Dosage: PREDNISOLONE 60 MG P.O. PER DAY IN A TAPERING REGIMEN FOR 5 MONTHS
     Route: 048

REACTIONS (3)
  - Limb injury [Recovered/Resolved]
  - Atypical mycobacterial infection [Recovered/Resolved]
  - Off label use [Unknown]
